FAERS Safety Report 5411934-3 (Version None)
Quarter: 2007Q3

REPORT INFORMATION
  Report Type: 
  Country: None (occurrence: None)
  Receive Date: 20070809
  Receipt Date: 20070809
  Transmission Date: 20080115
  Serious: Yes (Death)
  Sender: FDA-Public Use
  Company Number: None

PATIENT
  Age: 81 Year
  Sex: Male
  Weight: 75 kg

DRUGS (1)
  1. ALBUMINAR-25 [Suspect]
     Indication: RENAL FAILURE ACUTE
     Dosage: 25GM Q8HR IV BOLUS
     Route: 040
     Dates: start: 20070804, end: 20070804

REACTIONS (12)
  - BLOOD CREATININE INCREASED [None]
  - CHILLS [None]
  - DYSPNOEA [None]
  - HAEMOGLOBIN DECREASED [None]
  - HYPOTENSION [None]
  - HYPOXIA [None]
  - NEUTROPHIL COUNT DECREASED [None]
  - ORTHOPNOEA [None]
  - PLATELET COUNT DECREASED [None]
  - PULMONARY OEDEMA [None]
  - RENAL DISORDER [None]
  - WHITE BLOOD CELL COUNT DECREASED [None]
